FAERS Safety Report 5362388-7 (Version None)
Quarter: 2007Q2

REPORT INFORMATION
  Report Type: 
  Country: None (occurrence: None)
  Receive Date: 20070619
  Receipt Date: 20070608
  Transmission Date: 20071010
  Serious: Yes (Hospitalization)
  Sender: FDA-Public Use
  Company Number: FR-ASTRAZENECA-2007SE03319

PATIENT
  Age: 60 Year
  Sex: Female

DRUGS (5)
  1. COKENZEN [Suspect]
     Indication: HYPERTENSION
     Route: 048
     Dates: start: 20070512, end: 20070515
  2. COKENZEN [Suspect]
     Route: 048
     Dates: start: 20070521
  3. TRILEPTAL [Suspect]
     Indication: BIPOLAR I DISORDER
     Route: 048
     Dates: end: 20070515
  4. TRILEPTAL [Suspect]
     Route: 048
     Dates: start: 20070523
  5. ATARAX [Concomitant]
     Indication: DRUG USE FOR UNKNOWN INDICATION
     Route: 048

REACTIONS (3)
  - HYPOCHLORAEMIA [None]
  - HYPONATRAEMIA [None]
  - MANIA [None]
